FAERS Safety Report 24938257 (Version 2)
Quarter: 2025Q1

REPORT INFORMATION
  Report Type: Spontaneous
  Country: JP (occurrence: JP)
  Receive Date: 20250206
  Receipt Date: 20250327
  Transmission Date: 20250408
  Serious: Yes (Hospitalization, Other)
  Sender: ELI LILLY AND COMPANY
  Company Number: JP-ELI_LILLY_AND_COMPANY-JP202501021402

PATIENT
  Age: 41 Year
  Sex: Male
  Weight: 77 kg

DRUGS (10)
  1. MOUNJARO [Suspect]
     Active Substance: TIRZEPATIDE
     Indication: Type 2 diabetes mellitus
     Dosage: 2.5 MG, WEEKLY (1/W)
     Route: 058
     Dates: start: 20240622, end: 20240720
  2. MOUNJARO [Suspect]
     Active Substance: TIRZEPATIDE
     Dosage: 5 MG, WEEKLY (1/W)
     Route: 058
     Dates: start: 20240727, end: 20241021
  3. HUMALOG [Concomitant]
     Active Substance: INSULIN LISPRO
     Dates: start: 20241207
  4. METGLUCO [Concomitant]
     Active Substance: METFORMIN HYDROCHLORIDE
     Dosage: 500 MG, TID
     Route: 048
     Dates: start: 20210227, end: 20241021
  5. DAPAGLIFLOZIN [Concomitant]
     Active Substance: DAPAGLIFLOZIN
     Dosage: 10 MG, DAILY
     Route: 048
     Dates: start: 20211225, end: 20241021
  6. AMARYL [Concomitant]
     Active Substance: GLIMEPIRIDE
     Dosage: 0.5 MG, DAILY
     Route: 048
     Dates: start: 20240330, end: 20241021
  7. AMLODIPINE BESYLATE\TELMISARTAN [Concomitant]
     Active Substance: AMLODIPINE BESYLATE\TELMISARTAN
     Dosage: 1 DOSAGE FORM, DAILY
     Route: 048
     Dates: start: 20201024, end: 20241021
  8. CRESTOR [Concomitant]
     Active Substance: ROSUVASTATIN CALCIUM
     Dosage: 2.5 MG, DAILY
     Route: 048
     Dates: start: 20200215, end: 20241021
  9. TRESIBA [Concomitant]
     Active Substance: INSULIN DEGLUDEC
     Dates: start: 20241207
  10. INSULIN NOS [Concomitant]
     Active Substance: INSULIN NOS
     Dates: start: 20241028

REACTIONS (10)
  - Henoch-Schonlein purpura [Unknown]
  - Ketosis [Unknown]
  - Blood ketone body increased [Unknown]
  - Nephrotic syndrome [Unknown]
  - Nausea [Unknown]
  - Gastric ulcer [Unknown]
  - Skin ulcer [Unknown]
  - Off label use [Unknown]
  - Eczema [Unknown]
  - Decreased appetite [Unknown]

NARRATIVE: CASE EVENT DATE: 20240101
